FAERS Safety Report 6011588-1 (Version None)
Quarter: 2008Q4

REPORT INFORMATION
  Report Type: 
  Country: None (occurrence: None)
  Receive Date: 20081218
  Receipt Date: 20080917
  Transmission Date: 20090506
  Serious: No
  Sender: FDA-Public Use
  Company Number: US-ASTRAZENECA-2008UW19286

PATIENT
  Age: 70 Year
  Sex: Female
  Weight: 90.7 kg

DRUGS (6)
  1. CRESTOR [Suspect]
     Indication: BLOOD CHOLESTEROL INCREASED
     Route: 048
  2. ACTOS [Concomitant]
  3. GLIPIZIDE [Concomitant]
  4. TOPROL-XL [Concomitant]
  5. ASPIRIN [Concomitant]
  6. VITAMIN D [Concomitant]

REACTIONS (2)
  - CONTUSION [None]
  - MYALGIA [None]
